FAERS Safety Report 4303894-3 (Version None)
Quarter: 2004Q1

REPORT INFORMATION
  Report Type: 
  Country: None (occurrence: None)
  Receive Date: 20040225
  Receipt Date: 20040109
  Transmission Date: 20041129
  Serious: Yes (Disabling)
  Sender: FDA-Public Use
  Company Number: WAES 0401USA00730

PATIENT
  Age: 57 Year
  Sex: Male
  Weight: 105 kg

DRUGS (28)
  1. ALBUTEROL [Concomitant]
     Indication: WHEEZING
     Route: 055
  2. ALBUTEROL [Concomitant]
     Route: 055
  3. ALBUTEROL [Concomitant]
     Indication: COUGH
     Route: 055
  4. ALBUTEROL [Concomitant]
     Route: 055
  5. ASPIRIN [Concomitant]
  6. ASTELIN [Concomitant]
  7. TESSALON [Concomitant]
     Route: 048
  8. BETAMETHASONE [Concomitant]
     Route: 061
  9. PULMICORT [Concomitant]
     Route: 055
  10. ATACAND [Concomitant]
     Route: 048
  11. ZYRTEC [Concomitant]
     Route: 048
  12. ZYRTEC-D 12 HOUR [Concomitant]
     Route: 048
  13. CHONDROITIN SULFATE SODIUM AND GLUCOSAMINE HYDROCHLORIDE [Concomitant]
  14. ZETIA [Suspect]
     Indication: BLOOD CHOLESTEROL INCREASED
     Route: 048
     Dates: start: 20030101, end: 20040108
  15. ZETIA [Suspect]
     Indication: BLOOD TRIGLYCERIDES INCREASED
     Route: 048
     Dates: start: 20030101, end: 20040108
  16. FISH OIL (UNSPECIFIED) [Concomitant]
  17. ADVAIR DISKUS 100/50 [Concomitant]
     Indication: ASTHMA EXACERBATION PROPHYLAXIS
     Route: 055
  18. LASIX [Concomitant]
  19. TEQUIN [Concomitant]
     Indication: SINUSITIS
  20. ANUSOL-HC 25 MG SUPPOSITORIES [Concomitant]
     Indication: HAEMORRHAGE
     Route: 054
  21. IPRATROPIUM BROMIDE [Concomitant]
     Indication: WHEEZING
  22. NASONEX [Concomitant]
     Route: 055
  23. SINGULAIR [Concomitant]
     Route: 048
  24. NIASPAN [Concomitant]
     Route: 048
  25. PRILOSEC [Concomitant]
     Route: 048
  26. KLOR-CON [Concomitant]
  27. VIAGRA [Concomitant]
     Route: 048
  28. VERAPAMIL MSD LP [Concomitant]
     Route: 048

REACTIONS (3)
  - ARTHRALGIA [None]
  - BLOOD CREATINE PHOSPHOKINASE INCREASED [None]
  - MYALGIA [None]
